FAERS Safety Report 6147520-X (Version None)
Quarter: 2009Q2

REPORT INFORMATION
  Report Type: 
  Country: None (occurrence: None)
  Receive Date: 20090408
  Receipt Date: 20090406
  Transmission Date: 20091009
  Serious: Yes (Death)
  Sender: FDA-Public Use
  Company Number: US-ASTRAZENECA-2009UW08587

PATIENT
  Age: 56 Year
  Sex: Male

DRUGS (1)
  1. NEXIUM [Suspect]
     Indication: OESOPHAGEAL CARCINOMA
     Route: 048

REACTIONS (1)
  - OESOPHAGEAL CARCINOMA [None]
